FAERS Safety Report 5295201-7 (Version None)
Quarter: 2007Q1

REPORT INFORMATION
  Report Type: 
  Country: None (occurrence: None)
  Receive Date: 20070201
  Receipt Date: 20061019
  Transmission Date: 20070707
  Serious: No
  Sender: FDA-Public Use
  Company Number: 2006PV023593

PATIENT
  Age: 65 Year
  Sex: Female
  Weight: 59.8748 kg

DRUGS (4)
  1. BYETTA [Suspect]
     Indication: DIABETES MELLITUS NON-INSULIN-DEPENDENT
     Dosage: SEE IMAGE
     Route: 058
     Dates: start: 20060801, end: 20060901
  2. BYETTA [Suspect]
     Indication: DIABETES MELLITUS NON-INSULIN-DEPENDENT
     Dosage: SEE IMAGE
     Route: 058
     Dates: start: 20060901
  3. GLUCOPHAGE XR [Concomitant]
  4. AMARYL [Concomitant]

REACTIONS (15)
  - AGEUSIA [None]
  - BLOOD GLUCOSE DECREASED [None]
  - CYSTITIS [None]
  - DECREASED APPETITE [None]
  - DRUG EFFECT DECREASED [None]
  - ERUCTATION [None]
  - GASTROOESOPHAGEAL REFLUX DISEASE [None]
  - HEADACHE [None]
  - HYPERHIDROSIS [None]
  - HYPERSOMNIA [None]
  - INJECTION SITE BRUISING [None]
  - INJECTION SITE ERYTHEMA [None]
  - NAUSEA [None]
  - REGURGITATION [None]
  - WEIGHT DECREASED [None]
